FAERS Safety Report 10218556 (Version 1)
Quarter: 2014Q2

REPORT INFORMATION
  Report Type: Spontaneous
  Country: US (occurrence: US)
  Receive Date: 20140605
  Receipt Date: 20140605
  Transmission Date: 20141212
  Serious: No
  Sender: FDA-Public Use
  Company Number: US-009507513-1405USA001304

PATIENT
  Sex: Female
  Weight: 80.73 kg

DRUGS (2)
  1. CHLOR-TRIMETON 12 HOUR [Suspect]
     Indication: HYPERSENSITIVITY
     Dosage: UNK, UNKNOWN
     Route: 048
  2. BENADRYL [Suspect]
     Indication: HYPERSENSITIVITY
     Dosage: UNK, UNKNOWN

REACTIONS (1)
  - Somnolence [Unknown]
